FAERS Safety Report 17163076 (Version 1)
Quarter: 2019Q4

REPORT INFORMATION
  Report Type: Spontaneous
  Country: US (occurrence: US)
  Receive Date: 20191217
  Receipt Date: 20191217
  Transmission Date: 20200122
  Serious: Yes (Other)
  Sender: FDA-Public Use
  Company Number: US-GLAXOSMITHKLINE-US2019225179

PATIENT
  Sex: Female

DRUGS (3)
  1. FLOVENT [Suspect]
     Active Substance: FLUTICASONE PROPIONATE
     Indication: ASTHMA
     Dosage: UNK
     Route: 065
  2. FLOVENT [Suspect]
     Active Substance: FLUTICASONE PROPIONATE
     Indication: BRONCHITIS
  3. FLOVENT [Suspect]
     Active Substance: FLUTICASONE PROPIONATE
     Indication: CROUP INFECTIOUS

REACTIONS (4)
  - Pneumonia [Recovered/Resolved]
  - Product use in unapproved indication [Unknown]
  - Speech disorder [Recovering/Resolving]
  - Aphonia [Recovering/Resolving]
